FAERS Safety Report 8889112 (Version 2)
Quarter: 2012Q4

REPORT INFORMATION
  Report Type: 
  Country: JP (occurrence: JP)
  Receive Date: 20121106
  Receipt Date: 20121204
  Transmission Date: 20130627
  Serious: Yes (Other)
  Sender: FDA-Public Use
  Company Number: JP-PFIZER INC-2012272366

PATIENT
  Age: 33 Year
  Sex: Male

DRUGS (4)
  1. DALACIN [Suspect]
     Dosage: 1200mg/day
  2. MEROPENEM [Concomitant]
     Indication: BACTERIAL MENINGITIS
     Dosage: 6g/day
  3. DEXAMETHASONE [Concomitant]
     Indication: BACTERIAL MENINGITIS
     Dosage: 13.2mg/day
  4. HEPARIN [Concomitant]
     Indication: VENOUS THROMBOSIS
     Dosage: 10000 units/day

REACTIONS (1)
  - Drug-induced liver injury [Unknown]
